FAERS Safety Report 23695731 (Version 1)
Quarter: 2024Q2

REPORT INFORMATION
  Report Type: Spontaneous
  Country: US (occurrence: US)
  Receive Date: 20240402
  Receipt Date: 20240402
  Transmission Date: 20240716
  Serious: Yes (Other)
  Sender: FDA-Public Use
  Company Number: US-BRISTOL-MYERS SQUIBB COMPANY-2024-050238

PATIENT
  Age: 48 Year
  Sex: Female

DRUGS (3)
  1. NIVOLUMAB [Suspect]
     Active Substance: NIVOLUMAB
     Indication: Metastatic malignant melanoma
     Dosage: 12 DOSES
  2. DABRAFENIB [Concomitant]
     Active Substance: DABRAFENIB
     Indication: Metastatic malignant melanoma
  3. TRAMETINIB [Concomitant]
     Active Substance: TRAMETINIB
     Indication: Metastatic malignant melanoma

REACTIONS (1)
  - Immune-mediated hypothyroidism [Unknown]
